FAERS Safety Report 23752534 (Version 1)
Quarter: 2024Q2

REPORT INFORMATION
  Report Type: Spontaneous
  Country: US (occurrence: US)
  Receive Date: 20240417
  Receipt Date: 20240417
  Transmission Date: 20240716
  Serious: Yes (Other)
  Sender: FDA-Public Use
  Company Number: US-HIKMA PHARMACEUTICALS USA INC.-US-H14001-24-02963

PATIENT
  Age: 51 Year
  Sex: Female

DRUGS (35)
  1. BUPIVACAINE [Suspect]
     Active Substance: BUPIVACAINE
     Dosage: 10 MILLIGRAM/D
     Route: 037
     Dates: start: 20180628
  2. BUPIVACAINE [Suspect]
     Active Substance: BUPIVACAINE
     Dosage: 10.4 MILLIGRAM/D
     Route: 037
     Dates: start: 20190619
  3. BUPIVACAINE [Suspect]
     Active Substance: BUPIVACAINE
     Dosage: 11 MILLIGRAM/D
     Route: 037
     Dates: start: 20190820
  4. BUPIVACAINE [Suspect]
     Active Substance: BUPIVACAINE
     Indication: Spinal pain
     Dosage: 2 MILLIGRAM/D
     Route: 037
     Dates: start: 20070222
  5. BUPIVACAINE [Suspect]
     Active Substance: BUPIVACAINE
     Dosage: 4 MILLIGRAM/D
     Route: 037
     Dates: start: 20080908
  6. BUPIVACAINE [Suspect]
     Active Substance: BUPIVACAINE
     Dosage: 4.5 MILLIGRAM/D
     Route: 037
     Dates: start: 20080714
  7. BUPIVACAINE [Suspect]
     Active Substance: BUPIVACAINE
     Dosage: 5 MILLIGRAM/D
     Route: 037
     Dates: start: 20080219
  8. BUPIVACAINE [Suspect]
     Active Substance: BUPIVACAINE
     Dosage: 5 MILLIGRAM/D
     Route: 037
     Dates: start: 20100923
  9. BUPIVACAINE [Suspect]
     Active Substance: BUPIVACAINE
     Dosage: 8 MILLIGRAM/D
     Route: 037
     Dates: start: 20200125
  10. BUPIVACAINE [Suspect]
     Active Substance: BUPIVACAINE
     Dosage: 9 MILLIGRAM/D
     Route: 037
     Dates: start: 20120813
  11. BUPIVACAINE [Suspect]
     Active Substance: BUPIVACAINE
     Dosage: 9 MILLIGRAM/D
     Route: 037
     Dates: start: 20150708
  12. CLONIDINE [Suspect]
     Active Substance: CLONIDINE
     Dosage: 228 MICROGRAM/D
     Route: 037
     Dates: start: 20200125
  13. CLONIDINE [Suspect]
     Active Substance: CLONIDINE
     Dosage: 250 MICROGRAM/D
     Route: 037
     Dates: start: 20100923
  14. CLONIDINE [Suspect]
     Active Substance: CLONIDINE
     Dosage: 270 MICROGRAM/D
     Route: 037
     Dates: start: 20150708
  15. CLONIDINE [Suspect]
     Active Substance: CLONIDINE
     Dosage: 270 MICROGRAM/D
     Route: 037
     Dates: start: 20180813
  16. CLONIDINE [Suspect]
     Active Substance: CLONIDINE
     Dosage: 300 MICROGRAM/D
     Route: 037
     Dates: start: 20080219
  17. CLONIDINE [Suspect]
     Active Substance: CLONIDINE
     Dosage: 300 MICROGRAM/D
     Route: 037
     Dates: start: 20180628
  18. CLONIDINE [Suspect]
     Active Substance: CLONIDINE
     Dosage: 314 MICROGRAM/D
     Route: 037
     Dates: start: 20190619
  19. CLONIDINE [Suspect]
     Active Substance: CLONIDINE
     Dosage: 330 MICROGRAM/D
     Route: 037
     Dates: start: 20190820
  20. CLONIDINE [Suspect]
     Active Substance: CLONIDINE
     Dosage: 390 MICROGRAM/D
     Route: 037
     Dates: start: 20080908
  21. CLONIDINE [Suspect]
     Active Substance: CLONIDINE
     Dosage: 450 MICROGRAM/D
     Route: 037
     Dates: start: 20080714
  22. CLONIDINE [Suspect]
     Active Substance: CLONIDINE
     Indication: Spinal pain
     Dosage: 60 MICROGRAM/D
     Route: 037
     Dates: start: 20070222
  23. FENTANYL [Suspect]
     Active Substance: FENTANYL\FENTANYL CITRATE
     Indication: Spinal pain
     Dosage: 10 MICROGRAM/D
     Route: 037
     Dates: start: 20070222
  24. FENTANYL [Suspect]
     Active Substance: FENTANYL\FENTANYL CITRATE
     Dosage: 50 MICROGRAM/D
     Route: 037
     Dates: start: 20080219
  25. FENTANYL [Suspect]
     Active Substance: FENTANYL\FENTANYL CITRATE
     Dosage: 75 MICROGRAM/D
     Route: 037
     Dates: start: 20080714
  26. SUFENTANIL [Suspect]
     Active Substance: SUFENTANIL
     Dosage: 100 MICROGRAM/D
     Route: 037
     Dates: start: 20180628
  27. SUFENTANIL [Suspect]
     Active Substance: SUFENTANIL
     Dosage: 105 MICROGRAM/D
     Route: 037
     Dates: start: 20190619
  28. SUFENTANIL [Suspect]
     Active Substance: SUFENTANIL
     Dosage: 110 MICROGRAM/D
     Route: 037
     Dates: start: 20190820
  29. SUFENTANIL [Suspect]
     Active Substance: SUFENTANIL
     Dosage: 114 MICROGRAM/D
     Route: 037
     Dates: start: 20200125
  30. SUFENTANIL [Suspect]
     Active Substance: SUFENTANIL
     Indication: Spinal pain
     Dosage: 65 MICROGRAM/D
     Route: 037
     Dates: start: 20080908
  31. SUFENTANIL [Suspect]
     Active Substance: SUFENTANIL
     Dosage: 83 MICROGRAM/D
     Route: 037
     Dates: start: 20100923
  32. SUFENTANIL [Suspect]
     Active Substance: SUFENTANIL
     Dosage: 90 MICROGRAM/D
     Route: 037
     Dates: start: 20120813
  33. SUFENTANIL [Suspect]
     Active Substance: SUFENTANIL
     Dosage: 91 MICROGRAM/D
     Route: 037
     Dates: start: 20150708
  34. DEXAMETHASONE [Concomitant]
     Active Substance: DEXAMETHASONE
     Indication: Spinal cord oedema
     Dosage: UNKNOWN
     Route: 065
  35. HYDROMORPHONE [Concomitant]
     Active Substance: HYDROMORPHONE
     Indication: Pain
     Dosage: UNKNOWN
     Route: 008

REACTIONS (2)
  - Granuloma [Unknown]
  - Drug ineffective [Unknown]
